FAERS Safety Report 5581496-9 (Version None)
Quarter: 2008Q1

REPORT INFORMATION
  Report Type: 
  Country: None (occurrence: None)
  Receive Date: 20080103
  Receipt Date: 20080103
  Transmission Date: 20080703
  Serious: Yes (Hospitalization)
  Sender: FDA-Public Use
  Company Number: None

PATIENT
  Age: 58 Year
  Sex: Male
  Weight: 127.0072 kg

DRUGS (2)
  1. LOVASTATIN [Suspect]
     Indication: BLOOD CHOLESTEROL INCREASED
     Dosage: 20MG ONCE A DAY PO
     Route: 048
     Dates: start: 20070808, end: 20070909
  2. LOVASTATIN [Suspect]
     Indication: BLOOD CHOLESTEROL INCREASED
     Dosage: 40MG ONCE A DAY PO
     Route: 048
     Dates: start: 20070910, end: 20071222

REACTIONS (14)
  - ARTHRALGIA [None]
  - ASTHENIA [None]
  - CHILLS [None]
  - DRUG HYPERSENSITIVITY [None]
  - EAR PAIN [None]
  - FATIGUE [None]
  - HEADACHE [None]
  - LYMPHADENOPATHY [None]
  - NECK PAIN [None]
  - PHOTOPHOBIA [None]
  - PYREXIA [None]
  - RASH ERYTHEMATOUS [None]
  - STAPHYLOCOCCAL INFECTION [None]
  - VARICELLA [None]
